FAERS Safety Report 9376551 (Version 1)
Quarter: 2013Q2

REPORT INFORMATION
  Report Type: Spontaneous
  Country: US (occurrence: None)
  Receive Date: 20130628
  Receipt Date: 20130628
  Transmission Date: 20140414
  Serious: Yes (Hospitalization)
  Sender: FDA-Public Use
  Company Number: None

PATIENT
  Age: 65 Year
  Sex: Female
  Weight: 56.25 kg

DRUGS (1)
  1. METFORMIN [Suspect]
     Route: 048
     Dates: start: 20130530, end: 20130627

REACTIONS (5)
  - Rectal haemorrhage [None]
  - Rectal fissure [None]
  - Faecaloma [None]
  - Haemoglobin decreased [None]
  - Platelet count decreased [None]
